FAERS Safety Report 18841039 (Version 2)
Quarter: 2021Q3

REPORT INFORMATION
  Report Type: Other
  Country: US (occurrence: US)
  Receive Date: 20210204
  Receipt Date: 20210923
  Transmission Date: 20211014
  Serious: Yes (Other)
  Sender: FDA-Public Use
  Company Number: US-ROCHE-2761803

PATIENT
  Age: 52 Year
  Sex: Male
  Weight: 64 kg

DRUGS (17)
  1. ALBUTEROL. [Concomitant]
     Active Substance: ALBUTEROL
  2. MORPHINE [Concomitant]
     Active Substance: MORPHINE
  3. LASIX [Concomitant]
     Active Substance: FUROSEMIDE
  4. LAMICTAL [Concomitant]
     Active Substance: LAMOTRIGINE
  5. BENADRYL [Suspect]
     Active Substance: DIPHENHYDRAMINE HYDROCHLORIDE
     Indication: PREMEDICATION
     Route: 042
  6. DECADRON [Concomitant]
     Active Substance: DEXAMETHASONE
  7. HYDROXYZINE [Concomitant]
     Active Substance: HYDROXYZINE HYDROCHLORIDE
  8. IMITREX [Concomitant]
     Active Substance: SUMATRIPTAN SUCCINATE
  9. PHENERGAN [Concomitant]
     Active Substance: PROMETHAZINE HYDROCHLORIDE
  10. TYLENOL [Suspect]
     Active Substance: ACETAMINOPHEN
     Indication: PREMEDICATION
     Route: 048
  11. OCREVUS [Suspect]
     Active Substance: OCRELIZUMAB
     Indication: PROGRESSIVE MULTIPLE SCLEROSIS
     Route: 042
     Dates: start: 20180323
  12. SOLU?MEDROL [Suspect]
     Active Substance: METHYLPREDNISOLONE SODIUM SUCCINATE
     Indication: PREMEDICATION
     Route: 042
  13. COZAAR [Concomitant]
     Active Substance: LOSARTAN POTASSIUM
  14. TIZANIDINE. [Concomitant]
     Active Substance: TIZANIDINE
  15. GABAPENTIN. [Concomitant]
     Active Substance: GABAPENTIN
  16. KLOR?CON [Concomitant]
     Active Substance: POTASSIUM CHLORIDE
  17. TRILEPTAL [Concomitant]
     Active Substance: OXCARBAZEPINE

REACTIONS (2)
  - Seizure [Not Recovered/Not Resolved]
  - Tooth fracture [Not Recovered/Not Resolved]

NARRATIVE: CASE EVENT DATE: 202009
